FAERS Safety Report 20856162 (Version 1)
Quarter: 2022Q2

REPORT INFORMATION
  Report Type: Spontaneous
  Country: US (occurrence: US)
  Receive Date: 20220520
  Receipt Date: 20220520
  Transmission Date: 20220721
  Serious: No
  Sender: FDA-Public Use
  Company Number: US-BoehringerIngelheim-2022-BI-171832

PATIENT

DRUGS (1)
  1. JENTADUETO XR [Suspect]
     Active Substance: LINAGLIPTIN\METFORMIN HYDROCHLORIDE
     Indication: Product used for unknown indication
     Dosage: FOA: EXTENDED RELEASE 24 HOUR 2.5-1000 MG
     Route: 048

REACTIONS (1)
  - Medication error [Unknown]
